FAERS Safety Report 5213152-0 (Version None)
Quarter: 2007Q1

REPORT INFORMATION
  Report Type: 
  Country: None (occurrence: None)
  Receive Date: 20070119
  Receipt Date: 20070111
  Transmission Date: 20070707
  Serious: Yes (Other)
  Sender: FDA-Public Use
  Company Number: GB-GLAXOSMITHKLINE-B0453592A

PATIENT
  Age: 38 Year
  Sex: Female

DRUGS (2)
  1. NIQUITIN CQ 4MG LOZENGE [Suspect]
     Indication: SMOKING CESSATION THERAPY
     Route: 002
     Dates: start: 20050301
  2. COFFEE [Concomitant]
     Route: 065

REACTIONS (3)
  - DEPENDENCE [None]
  - FEELING ABNORMAL [None]
  - ILL-DEFINED DISORDER [None]
